FAERS Safety Report 18355735 (Version 1)
Quarter: 2020Q4

REPORT INFORMATION
  Report Type: Spontaneous
  Country: US (occurrence: US)
  Receive Date: 20201007
  Receipt Date: 20201007
  Transmission Date: 20210114
  Serious: Yes (Disabling)
  Sender: FDA-Public Use
  Company Number: None

PATIENT
  Age: 68 Year
  Sex: Female
  Weight: 81 kg

DRUGS (12)
  1. GLUCOSAMINE/MSM [Concomitant]
  2. CALCIUM CITRATE + VIT. D3 [Concomitant]
  3. FLUOROURACIL 5% CREAM [Suspect]
     Active Substance: FLUOROURACIL
     Indication: PRECANCEROUS SKIN LESION
     Dosage: ?          QUANTITY:1 CREAM;?
     Route: 061
     Dates: start: 20200917, end: 20200928
  4. SIMVASTATIN. [Concomitant]
     Active Substance: SIMVASTATIN
  5. FLAX OIL [Concomitant]
  6. SENIOR + WOMEN^S MULTI-VITAMINS [Concomitant]
  7. LOW DOSE ASPIRIN [Concomitant]
     Active Substance: ASPIRIN
  8. FISH OIL [Concomitant]
     Active Substance: FISH OIL
  9. LEVOTHYROXINE. [Concomitant]
     Active Substance: LEVOTHYROXINE
  10. LISINOPRIL 10 MG [Suspect]
     Active Substance: LISINOPRIL
     Indication: HYPERTENSION
     Dosage: ?          QUANTITY:1 TABLET(S);?
     Route: 048
     Dates: start: 20200902, end: 20200902
  11. METFORMIN [Concomitant]
     Active Substance: METFORMIN HYDROCHLORIDE
  12. COENZYME Q10 [Concomitant]
     Active Substance: DIETARY SUPPLEMENT\UBIDECARENONE

REACTIONS (5)
  - Malaise [None]
  - Diarrhoea [None]
  - Ocular hyperaemia [None]
  - Asthenia [None]
  - Hypertension [None]
